FAERS Safety Report 25007705 (Version 2)
Quarter: 2025Q1

REPORT INFORMATION
  Report Type: Spontaneous
  Country: PT (occurrence: PT)
  Receive Date: 20250225
  Receipt Date: 20250321
  Transmission Date: 20250408
  Serious: Yes (Other)
  Sender: BAUSCH AND LOMB
  Company Number: PT-AMGEN-PRTSP2025029092

PATIENT
  Age: 49 Year
  Sex: Female

DRUGS (12)
  1. DEXAMETHASONE [Suspect]
     Active Substance: DEXAMETHASONE
     Indication: Plasma cell myeloma
     Route: 065
  2. DEXAMETHASONE [Suspect]
     Active Substance: DEXAMETHASONE
     Indication: Plasma cell myeloma
     Route: 065
  3. DEXAMETHASONE [Suspect]
     Active Substance: DEXAMETHASONE
     Indication: Plasma cell myeloma refractory
     Route: 065
  4. POMALIDOMIDE [Suspect]
     Active Substance: POMALIDOMIDE
     Indication: Plasma cell myeloma
     Route: 065
  5. POMALIDOMIDE [Suspect]
     Active Substance: POMALIDOMIDE
     Indication: Plasma cell myeloma refractory
  6. BORTEZOMIB [Suspect]
     Active Substance: BORTEZOMIB
     Indication: Plasma cell myeloma
     Route: 065
  7. LENALIDOMIDE [Suspect]
     Active Substance: LENALIDOMIDE
     Indication: Plasma cell myeloma refractory
     Route: 065
  8. CARFILZOMIB [Concomitant]
     Active Substance: CARFILZOMIB
     Indication: Plasma cell myeloma
     Route: 065
  9. CARFILZOMIB [Concomitant]
     Active Substance: CARFILZOMIB
     Indication: Plasma cell myeloma refractory
  10. TECVAYLI [Concomitant]
     Active Substance: TECLISTAMAB-CQYV
     Indication: Plasma cell myeloma
  11. DARATUMUMAB [Concomitant]
     Active Substance: DARATUMUMAB
     Indication: Plasma cell myeloma refractory
     Route: 065
  12. THALIDOMIDE [Concomitant]
     Active Substance: THALIDOMIDE
     Indication: Plasma cell myeloma
     Route: 065

REACTIONS (6)
  - Plasma cell myeloma [Unknown]
  - Immune effector cell-associated neurotoxicity syndrome [Recovered/Resolved]
  - Respiratory tract infection [Unknown]
  - Therapy non-responder [Unknown]
  - Off label use [Unknown]
  - Drug ineffective [Unknown]
